FAERS Safety Report 22137565 (Version 1)
Quarter: 2023Q1

REPORT INFORMATION
  Report Type: Spontaneous
  Country: CA (occurrence: CA)
  Receive Date: 20230325
  Receipt Date: 20230325
  Transmission Date: 20230417
  Serious: Yes (Death, Hospitalization)
  Sender: FDA-Public Use
  Company Number: CA-FreseniusKabi-FK202303690

PATIENT
  Age: 65 Year
  Sex: Male
  Weight: 76 kg

DRUGS (1)
  1. PIPERACILLIN SODIUM\TAZOBACTAM SODIUM [Suspect]
     Active Substance: PIPERACILLIN SODIUM\TAZOBACTAM SODIUM
     Indication: Product used for unknown indication
     Route: 042

REACTIONS (14)
  - Hypotension [Fatal]
  - Hypoxia [Fatal]
  - General physical health deterioration [Fatal]
  - Haemoglobin decreased [Fatal]
  - Melaena [Fatal]
  - Haematemesis [Fatal]
  - Staphylococcal bacteraemia [Fatal]
  - Diarrhoea [Fatal]
  - Pyrexia [Fatal]
  - Abdominal tenderness [Fatal]
  - Weight decreased [Fatal]
  - Decreased appetite [Fatal]
  - Vomiting projectile [Fatal]
  - Clostridium test positive [Fatal]
